FAERS Safety Report 16445575 (Version 1)
Quarter: 2019Q2

REPORT INFORMATION
  Report Type: Spontaneous
  Country: US (occurrence: US)
  Receive Date: 20190508
  Receipt Date: 20190508
  Transmission Date: 20190711
  Serious: Yes (Hospitalization)
  Sender: FDA-Public Use
  Company Number: None

PATIENT
  Age: 63 Year
  Sex: Male

DRUGS (1)
  1. GLEOSTINE [Suspect]
     Active Substance: LOMUSTINE
     Route: 048
     Dates: start: 20190404

REACTIONS (3)
  - Visual field defect [None]
  - Head injury [None]
  - Platelet count decreased [None]

NARRATIVE: CASE EVENT DATE: 20190507
